FAERS Safety Report 25274190 (Version 3)
Quarter: 2025Q2

REPORT INFORMATION
  Report Type: Spontaneous
  Country: GR (occurrence: GR)
  Receive Date: 20250506
  Receipt Date: 20250519
  Transmission Date: 20250717
  Serious: Yes (Hospitalization, Disabling, Other)
  Sender: MYLAN
  Company Number: GR-MYLANLABS-2025M1037053

PATIENT
  Age: 19 Year
  Sex: Male

DRUGS (10)
  1. CYCLOSPORINE [Interacting]
     Active Substance: CYCLOSPORINE
     Indication: Transplant rejection
  2. VORICONAZOLE [Interacting]
     Active Substance: VORICONAZOLE
     Indication: Bronchopulmonary aspergillosis
  3. MYCOPHENOLATE MOFETIL [Concomitant]
     Active Substance: MYCOPHENOLATE MOFETIL
  4. METHYLPREDNISOLONE [Concomitant]
     Active Substance: METHYLPREDNISOLONE
     Indication: Transplant rejection
     Dosage: 16 MILLIGRAM, QD (FIRST TREATED WITH PULSED HIGH-DOSE METHYLPREDNISOLONE AND AT PRESENTATION WAS ON 16 MG DAILY)
  5. OMEPRAZOLE [Concomitant]
     Active Substance: OMEPRAZOLE
  6. INSULIN LISPRO [Concomitant]
     Active Substance: INSULIN LISPRO
  7. ALLOPURINOL [Concomitant]
     Active Substance: ALLOPURINOL
  8. AMLODIPINE [Concomitant]
     Active Substance: AMLODIPINE BESYLATE
  9. ALFACALCIDOL [Concomitant]
     Active Substance: ALFACALCIDOL
  10. MAGNESIUM [Concomitant]
     Active Substance: MAGNESIUM
     Indication: Mineral supplementation

REACTIONS (5)
  - Blindness [Unknown]
  - Immunosuppressant drug level increased [Recovered/Resolved]
  - Seizure [Unknown]
  - Posterior reversible encephalopathy syndrome [Recovered/Resolved]
  - Drug interaction [Recovered/Resolved]
